FAERS Safety Report 5834326-1 (Version None)
Quarter: 2008Q3

REPORT INFORMATION
  Report Type: 
  Country: None (occurrence: None)
  Receive Date: 20080805
  Receipt Date: 20080724
  Transmission Date: 20090109
  Serious: Yes (Other)
  Sender: FDA-Public Use
  Company Number: US-PFIZER INC-2008063100

PATIENT
  Sex: Male
  Weight: 86.2 kg

DRUGS (7)
  1. CHANTIX [Suspect]
     Indication: SMOKING CESSATION THERAPY
     Dates: start: 20080712, end: 20080719
  2. TAMSULOSIN HCL [Concomitant]
  3. OXYCONTIN [Concomitant]
  4. OXYCODONE HCL [Concomitant]
  5. PREVACID [Concomitant]
  6. CYCLOBENZAPRINE HCL [Concomitant]
  7. ALBUTEROL [Concomitant]
     Indication: ASTHMA

REACTIONS (4)
  - AGGRESSION [None]
  - ANGER [None]
  - PARANOIA [None]
  - WEIGHT DECREASED [None]
